FAERS Safety Report 6427585-8 (Version None)
Quarter: 2009Q4

REPORT INFORMATION
  Report Type: 
  Country: None (occurrence: None)
  Receive Date: 20091104
  Receipt Date: 20091014
  Transmission Date: 20100525
  Serious: Yes (Hospitalization)
  Sender: FDA-Public Use
  Company Number: FR-PFIZER INC-2009282144

PATIENT
  Age: 52 Year
  Sex: Male

DRUGS (11)
  1. XANAX [Suspect]
     Dosage: UNK
     Route: 048
     Dates: start: 20050101
  2. AMLOR [Suspect]
     Dosage: UNK
     Route: 048
     Dates: start: 20050101
  3. TAHOR [Suspect]
     Dosage: UNK
     Route: 048
     Dates: start: 20050101, end: 20090901
  4. MINOXIDIL [Suspect]
     Dosage: UNK
     Route: 048
     Dates: start: 20050101
  5. RANITIDINE HCL [Suspect]
     Dosage: 150 MG, 1X/DAY
     Route: 048
     Dates: start: 20050101
  6. PLAVIX [Suspect]
     Dosage: UNK
     Route: 048
     Dates: start: 20050101
  7. CELECTOL [Suspect]
     Dosage: 200 MG, 1X/DAY
     Route: 048
     Dates: start: 20050101
  8. LANTUS [Suspect]
     Dosage: 6 IU, 1X/DAY
     Route: 058
     Dates: start: 20050101
  9. INSULIN GLULISINE [Suspect]
     Dosage: UNK
     Route: 058
     Dates: start: 20050101
  10. RENAGEL [Suspect]
     Dosage: UNK
     Route: 048
     Dates: start: 20050101
  11. KAYEXALATE [Suspect]
     Dosage: UNK
     Route: 048
     Dates: start: 20050101

REACTIONS (1)
  - PANCREATITIS [None]
